FAERS Safety Report 9344185 (Version 1)
Quarter: 2013Q2

REPORT INFORMATION
  Report Type: Spontaneous
  Country: ES (occurrence: ES)
  Receive Date: 20130612
  Receipt Date: 20130612
  Transmission Date: 20140414
  Serious: Yes (Death, Other)
  Sender: FDA-Public Use
  Company Number: ES-PFIZER INC-2013164360

PATIENT
  Age: 62 Year
  Sex: Female

DRUGS (18)
  1. OXALIPLATIN [Suspect]
     Indication: COLON CANCER STAGE IV
     Dosage: 85 MG/M2, (ON DAY 1)
     Route: 042
  2. FLUOROURACIL [Interacting]
     Indication: COLON CANCER STAGE IV
     Dosage: 400 MG/M2, (ON DAY 1)
     Route: 040
  3. FLUOROURACIL [Interacting]
     Dosage: 1200 MG/M2 , (IN A 48 HOUR CONTINUOUS INFUSION)
     Route: 041
  4. NERVINEX [Interacting]
     Indication: HERPES ZOSTER
     Dosage: 1 DF, 1X/DAY
     Route: 048
  5. LEUCOVORIN [Concomitant]
     Indication: COLON CANCER STAGE IV
     Dosage: 200 MG/M2, (ON DAY 1)
     Route: 042
  6. BEVACIZUMAB [Concomitant]
     Indication: COLON CANCER STAGE IV
     Dosage: 5 MG/KG, (ON DAY 1)
     Route: 042
  7. FAMCICLOVIR [Concomitant]
     Indication: HERPES ZOSTER
     Dosage: UNK
  8. MEROPENEM [Concomitant]
     Indication: ANTIBIOTIC THERAPY
     Dosage: UNK
     Route: 042
  9. VANCOMYCIN [Concomitant]
     Indication: ANTIBIOTIC THERAPY
     Dosage: UNK
     Route: 042
  10. AMIKACIN [Concomitant]
     Dosage: UNK
  11. ACYCLOVIR [Concomitant]
     Dosage: UNK
  12. FLUCONAZOLE [Concomitant]
     Dosage: UNK
  13. CASPOFUNGIN [Concomitant]
     Dosage: UNK
  14. FILGRASTIM [Concomitant]
     Indication: COLONY STIMULATING FACTOR THERAPY
     Dosage: UNK
  15. MORPHINE [Concomitant]
     Indication: PAIN
     Dosage: UNK
  16. LIDOCAINE [Concomitant]
     Indication: ORAL DISORDER
     Dosage: UNK
     Route: 061
  17. SUCRALFATE [Concomitant]
     Indication: ORAL DISORDER
     Dosage: UNK
  18. ZINC SULFATE [Concomitant]
     Indication: HERPES VIRUS INFECTION
     Dosage: UNK
     Route: 061

REACTIONS (14)
  - Sepsis [Fatal]
  - Acute respiratory failure [Fatal]
  - Drug interaction [Fatal]
  - Melaena [Unknown]
  - Pigmentation disorder [Unknown]
  - Alopecia [Unknown]
  - Abdominal pain [Unknown]
  - Oral pain [Unknown]
  - Dysphagia [Unknown]
  - Leukopenia [Unknown]
  - Neutropenia [Unknown]
  - Thrombocytopenia [Unknown]
  - Pyrexia [Unknown]
  - Neurotoxicity [Unknown]
